FAERS Safety Report 11393951 (Version 1)
Quarter: 2015Q3

REPORT INFORMATION
  Report Type: Spontaneous
  Country: US (occurrence: US)
  Receive Date: 20150819
  Receipt Date: 20150819
  Transmission Date: 20151125
  Serious: Yes (Other)
  Sender: FDA-Public Use
  Company Number: US-ASTRAZENECA-2015SE77672

PATIENT
  Age: 831 Month
  Sex: Male
  Weight: 79.4 kg

DRUGS (5)
  1. VITAMIN B12 [Concomitant]
     Active Substance: CYANOCOBALAMIN
     Dates: end: 201504
  2. CASODEX [Suspect]
     Active Substance: BICALUTAMIDE
     Route: 048
     Dates: start: 201302
  3. CALCIUM [Concomitant]
     Active Substance: CALCIUM
  4. LUPRON [Suspect]
     Active Substance: LEUPROLIDE ACETATE
     Indication: PROSTATE CANCER
     Route: 065
     Dates: start: 201303
  5. KEFLEX [Suspect]
     Active Substance: CEPHALEXIN
     Indication: FURUNCLE
     Route: 065
     Dates: start: 20150126, end: 20150126

REACTIONS (15)
  - Balance disorder [Unknown]
  - Abdominal pain upper [Recovered/Resolved]
  - Amnesia [Unknown]
  - Blood pressure increased [Unknown]
  - Asthenia [Recovered/Resolved]
  - Breast enlargement [Unknown]
  - Drug hypersensitivity [Recovered/Resolved]
  - Furuncle [Recovered/Resolved]
  - Vitamin B12 deficiency [Unknown]
  - Loss of consciousness [Recovered/Resolved]
  - Muscle atrophy [Unknown]
  - Haematochezia [Recovered/Resolved]
  - Dizziness [Unknown]
  - Seizure [Recovered/Resolved]
  - Vitamin D deficiency [Unknown]

NARRATIVE: CASE EVENT DATE: 201303
